FAERS Safety Report 9346990 (Version 2)
Quarter: 2013Q3

REPORT INFORMATION
  Report Type: Spontaneous
  Country: JP (occurrence: JP)
  Receive Date: 20130613
  Receipt Date: 20130727
  Transmission Date: 20140515
  Serious: Yes (Hospitalization, Congenital Anomaly, Other)
  Sender: FDA-Public Use
  Company Number: PHHY2013JP058984

PATIENT
  Sex: Female
  Weight: .11 kg

DRUGS (7)
  1. APRESOLINE [Suspect]
     Dosage: MATERNAL DOSE: 10 MG TABLETS AT A DOSE OF 3 TABLETS DAILY (3 DOSES PER DAY)
     Route: 064
  2. APRESOLINE [Suspect]
     Dosage: MATERNAL DOSE: 4 TABLETS PER DAY (4 DOSES PER DAY)
     Route: 064
  3. APRESOLINE [Suspect]
     Dosage: MATERNAL DOSE: 5 TABLETS PER DAY
     Route: 064
  4. NIFEDIPINE [Suspect]
     Dosage: MATERNAL DOSE: 25MG
     Route: 064
  5. ALDOMET [Suspect]
     Dosage: MATERNAL DOSE: 6 TABLETS DAILY (3 DOSES PER DAY)
     Route: 064
  6. ALDOMET [Suspect]
     Dosage: MATERNAL DOSE: 10 MG TABLETS AT A DOSE OF 3 TABLETS DAILY (3 DOSES PER DAY)
     Route: 064
  7. ALDOMET [Suspect]
     Dosage: MATERNAL DOSE: 12 TABLETS PER DAY (4 DOSES PER DAY)
     Route: 064

REACTIONS (5)
  - Low birth weight baby [Unknown]
  - Premature baby [Unknown]
  - Congenital megacolon [Recovered/Resolved]
  - Intestinal perforation [Unknown]
  - Foetal exposure during pregnancy [Unknown]
